FAERS Safety Report 17402139 (Version 6)
Quarter: 2022Q1

REPORT INFORMATION
  Report Type: Spontaneous
  Country: US (occurrence: US)
  Receive Date: 20200211
  Receipt Date: 20220330
  Transmission Date: 20220423
  Serious: No
  Sender: FDA-Public Use
  Company Number: US-PFIZER INC-2020057090

PATIENT
  Age: 71 Year
  Sex: Female
  Weight: 168 kg

DRUGS (4)
  1. LYRICA [Suspect]
     Active Substance: PREGABALIN
     Indication: Neuropathy peripheral
     Dosage: 100 MG, 3X/DAY
  2. LISINOPRIL [Concomitant]
     Active Substance: LISINOPRIL
     Indication: Hypertension
     Dosage: UNK
  3. BYDUREON [Concomitant]
     Active Substance: EXENATIDE
     Indication: Diabetes mellitus
     Dosage: UNK, WEEKLY
  4. GLIMEPIRIDE [Concomitant]
     Active Substance: GLIMEPIRIDE
     Indication: Diabetes mellitus
     Dosage: 40 MG, DAILY (20 MG EACH, 2 PILLS A DAY  )

REACTIONS (7)
  - Hypoacusis [Unknown]
  - Headache [Unknown]
  - Withdrawal syndrome [Unknown]
  - Nervous system disorder [Unknown]
  - Pain in extremity [Unknown]
  - Hypersensitivity [Unknown]
  - Feeling abnormal [Unknown]
